FAERS Safety Report 6182342-5 (Version None)
Quarter: 2009Q2

REPORT INFORMATION
  Report Type: 
  Country: None (occurrence: None)
  Receive Date: 20090505
  Receipt Date: 20090505
  Transmission Date: 20091009
  Serious: Yes (Other)
  Sender: FDA-Public Use
  Company Number: None

PATIENT
  Age: 44 Year
  Sex: Female
  Weight: 75.9775 kg

DRUGS (3)
  1. AVELOX [Suspect]
     Indication: PNEUMONIA
     Dosage: 400 MG-ONE PILL ONCE DAILY PO
     Route: 048
     Dates: start: 20090325, end: 20090326
  2. AVELOX [Suspect]
     Indication: SINUSITIS
     Dosage: 400 MG-ONE PILL ONCE DAILY PO
     Route: 048
     Dates: start: 20090325, end: 20090326
  3. AVELOX [Suspect]
     Indication: UPPER RESPIRATORY TRACT INFECTION
     Dosage: 400 MG-ONE PILL ONCE DAILY PO
     Route: 048
     Dates: start: 20090325, end: 20090326

REACTIONS (6)
  - DRUG HYPERSENSITIVITY [None]
  - EYE IRRITATION [None]
  - MUSCLE DISORDER [None]
  - OCULAR HYPERAEMIA [None]
  - PARAESTHESIA ORAL [None]
  - SWELLING FACE [None]
